FAERS Safety Report 26146861 (Version 1)
Quarter: 2025Q4

REPORT INFORMATION
  Report Type: Spontaneous
  Country: US (occurrence: US)
  Receive Date: 20251211
  Receipt Date: 20251211
  Transmission Date: 20260118
  Serious: Yes (Other)
  Sender: INSUD PHARMA
  Company Number: US-INSUD PHARMA-2512US10276

PATIENT

DRUGS (3)
  1. TESTOSTERONE [Suspect]
     Active Substance: TESTOSTERONE
     Indication: Hypogonadism
     Dosage: TWICE WEEKLY
     Route: 065
  2. PRASTERONE [Concomitant]
     Active Substance: PRASTERONE
     Indication: Hypogonadism
  3. PREGNENOLONE [Concomitant]
     Active Substance: PREGNENOLONE
     Indication: Hypogonadism

REACTIONS (8)
  - Aortic thrombosis [Unknown]
  - Embolism arterial [Unknown]
  - Influenza like illness [Unknown]
  - Feeling hot [Unknown]
  - Pruritus [Unknown]
  - Dizziness [Unknown]
  - Asthenia [Unknown]
  - Loss of consciousness [Unknown]
